FAERS Safety Report 13075698 (Version 1)
Quarter: 2016Q4

REPORT INFORMATION
  Report Type: Spontaneous
  Country: US (occurrence: US)
  Receive Date: 20161229
  Receipt Date: 20161229
  Transmission Date: 20170207
  Serious: Yes (Other)
  Sender: FDA-Public Use
  Company Number: None

PATIENT
  Age: 13 Year
  Sex: Female
  Weight: 54 kg

DRUGS (5)
  1. AZITHROMYCIN TAB, 250 MG [Suspect]
     Active Substance: AZITHROMYCIN ANHYDROUS
     Indication: PULMONARY CONGESTION
     Dosage: ?          QUANTITY:2 TABLET(S);?
     Route: 048
     Dates: start: 20161205, end: 20161206
  2. B VITAMIN [Concomitant]
  3. AZITHROMYCIN TAB, 250 MG [Suspect]
     Active Substance: AZITHROMYCIN ANHYDROUS
     Indication: COUGH
     Dosage: ?          QUANTITY:2 TABLET(S);?
     Route: 048
     Dates: start: 20161205, end: 20161206
  4. ADVIL [Concomitant]
     Active Substance: IBUPROFEN
  5. AZITHROMYCIN TAB, 250 MG [Suspect]
     Active Substance: AZITHROMYCIN ANHYDROUS
     Indication: PAIN
     Dosage: ?          QUANTITY:2 TABLET(S);?
     Route: 048
     Dates: start: 20161205, end: 20161206

REACTIONS (3)
  - Joint swelling [None]
  - Hypersensitivity [None]
  - Arthralgia [None]

NARRATIVE: CASE EVENT DATE: 20161205
